FAERS Safety Report 8485104-9 (Version None)
Quarter: 2012Q2

REPORT INFORMATION
  Report Type: 
  Country: None (occurrence: None)
  Receive Date: 20120625
  Receipt Date: 20120619
  Transmission Date: 20120825
  Serious: Yes (Death)
  Sender: FDA-Public Use
  Company Number: DSA_56476_2012

PATIENT
  Sex: Male

DRUGS (9)
  1. VITAMINA C /00008001/ [Concomitant]
  2. PREVALITE [Concomitant]
  3. FIBER [Concomitant]
  4. COQ-10 [Concomitant]
  5. ONE TABLET DAILY MENS FORMULA [Concomitant]
  6. XENAZINE [Suspect]
     Indication: HUNTINGTON'S DISEASE
     Dosage: (12.5 MG BID ORAL)
     Route: 048
     Dates: start: 20090128, end: 20120508
  7. CELEBREX [Concomitant]
  8. ORPHENADRINE-ASPIRIN-CAFFEINE [Concomitant]
  9. OSTEO BI-FLEX [Concomitant]

REACTIONS (9)
  - MOVEMENT DISORDER [None]
  - PAIN IN EXTREMITY [None]
  - ATAXIA [None]
  - DYSPHAGIA [None]
  - BACK PAIN [None]
  - BRACHIAL PLEXOPATHY [None]
  - MYELOPATHY [None]
  - MUSCLE ATROPHY [None]
  - INCONTINENCE [None]
